FAERS Safety Report 24163901 (Version 1)
Quarter: 2024Q3

REPORT INFORMATION
  Report Type: Spontaneous
  Country: CA (occurrence: CA)
  Receive Date: 20240801
  Receipt Date: 20240801
  Transmission Date: 20241016
  Serious: Yes (Other)
  Sender: SANOFI AVENTIS
  Company Number: CA-SA-SAC20240731000694

PATIENT
  Sex: Male

DRUGS (1)
  1. DUPILUMAB [Suspect]
     Active Substance: DUPILUMAB
     Indication: Sinus disorder
     Dosage: UNK
     Route: 065

REACTIONS (3)
  - Arthropathy [Recovering/Resolving]
  - Product prescribing issue [Unknown]
  - Product use in unapproved indication [Unknown]
